FAERS Safety Report 7645484-0 (Version None)
Quarter: 2011Q3

REPORT INFORMATION
  Report Type: 
  Country: None (occurrence: None)
  Receive Date: 20110729
  Receipt Date: 20110721
  Transmission Date: 20111222
  Serious: Yes (Hospitalization, Other)
  Sender: FDA-Public Use
  Company Number: US-BAYER-2011-021982

PATIENT
  Age: 17 Year
  Sex: Female
  Weight: 53.968 kg

DRUGS (5)
  1. CEPHALEXIN [Concomitant]
     Dosage: 500 MG, TID
     Route: 048
     Dates: start: 20081023, end: 20081101
  2. YAZ [Suspect]
     Indication: CONTRACEPTION
  3. AZITHROMYCIN [Concomitant]
     Dosage: 250 MG, QD
     Dates: start: 20081023, end: 20081028
  4. OXYCODONE HCL AND ACETAMINOPHEN [Concomitant]
     Indication: PAIN
     Dosage: UNK
     Dates: start: 20081125, end: 20081227
  5. LEVAQUIN [Concomitant]
     Indication: INFECTION
     Dosage: 500 MG, QD
     Route: 048
     Dates: start: 20081125, end: 20081205

REACTIONS (4)
  - ANXIETY [None]
  - INJURY [None]
  - DEPRESSION [None]
  - PULMONARY EMBOLISM [None]
